FAERS Safety Report 9114249 (Version 1)
Quarter: 2013Q1

REPORT INFORMATION
  Report Type: Spontaneous
  Country: US (occurrence: US)
  Receive Date: 20130208
  Receipt Date: 20130208
  Transmission Date: 20140127
  Serious: Yes (Other)
  Sender: FDA-Public Use
  Company Number: CHPA2013US002043

PATIENT
  Age: 72 Year
  Sex: Female

DRUGS (1)
  1. MYOFLEX ANALGESIC CREME [Suspect]
     Indication: PAIN
     Dosage: UNK, UNK
     Route: 061

REACTIONS (2)
  - Plasma cell myeloma [Not Recovered/Not Resolved]
  - Muscle spasms [Not Recovered/Not Resolved]
